FAERS Safety Report 11702664 (Version 22)
Quarter: 2020Q1

REPORT INFORMATION
  Report Type: Spontaneous
  Country: US (occurrence: US)
  Receive Date: 20151105
  Receipt Date: 20200203
  Transmission Date: 20200409
  Serious: No
  Sender: FDA-Public Use
  Company Number: US-PFIZER INC-2015365048

PATIENT
  Age: 54 Year
  Sex: Male
  Weight: 95 kg

DRUGS (15)
  1. LISINOPRIL + HIDROCLOROTIAZIDA [Concomitant]
     Active Substance: HYDROCHLOROTHIAZIDE\LISINOPRIL
     Indication: BLOOD PRESSURE ABNORMAL
     Dosage: UNK, 1X/DAY (HYDROCHLOROTHIAZIDE 20 MG, LISINOPRIL 25 MG)
     Dates: start: 1999
  2. LYRICA [Suspect]
     Active Substance: PREGABALIN
     Indication: PAIN
     Dosage: 300 MG, 3X/DAY
     Route: 048
     Dates: start: 20160303, end: 2016
  3. LYRICA [Suspect]
     Active Substance: PREGABALIN
     Indication: OSTEOARTHRITIS
     Dosage: 300 MG, 3X/DAY
     Route: 048
     Dates: start: 20160624, end: 2016
  4. LYRICA [Suspect]
     Active Substance: PREGABALIN
     Dosage: 300 MG, 3X/DAY
     Route: 048
     Dates: start: 20160913, end: 2016
  5. LYRICA [Suspect]
     Active Substance: PREGABALIN
     Dosage: 300 MG, 3X/DAY
     Route: 048
     Dates: start: 20181029
  6. LYRICA [Suspect]
     Active Substance: PREGABALIN
     Dosage: 300 MG, 3X/DAY
     Route: 048
     Dates: start: 20160728, end: 2016
  7. LYRICA [Suspect]
     Active Substance: PREGABALIN
     Dosage: 300 MG, 3X/DAY
     Route: 048
     Dates: start: 20190426, end: 2019
  8. ATENOLOL. [Concomitant]
     Active Substance: ATENOLOL
     Indication: BLOOD PRESSURE ABNORMAL
     Dosage: 25 MG, 1X/DAY
     Dates: start: 1999
  9. LYRICA [Suspect]
     Active Substance: PREGABALIN
     Dosage: 300 MG, 3X/DAY
     Route: 048
  10. OXYCODONE AND ACETAMINOPHEN [Concomitant]
     Active Substance: ACETAMINOPHEN\OXYCODONE HYDROCHLORIDE
     Indication: PAIN
     Dosage: UNK, 4X/DAY (OXYCODONE HYDROCHLORIDE 10 MG, PARACETAMOL 325 MG)
     Dates: start: 201504
  11. LYRICA [Suspect]
     Active Substance: PREGABALIN
     Dosage: 300 MG, 3X/DAY [TAKE 1 CAPSULE (300 MG TOTAL) BY MOUTH 3 (THREE) TIMES DAILY]
     Route: 048
     Dates: start: 20200128
  12. BUPRENORPHINE. [Concomitant]
     Active Substance: BUPRENORPHINE
     Indication: HYPERTENSION
     Dosage: UNK
     Dates: end: 201508
  13. LYRICA [Suspect]
     Active Substance: PREGABALIN
     Indication: HYPOAESTHESIA
     Dosage: 300 MG, 3X/DAY
     Route: 048
     Dates: start: 200909
  14. LYRICA [Suspect]
     Active Substance: PREGABALIN
     Dosage: 300 MG, 3X/DAY
     Route: 048
     Dates: start: 20161108
  15. LISINOPRIL. [Concomitant]
     Active Substance: LISINOPRIL
     Indication: HYPERTENSION
     Dosage: 25 MG, 1X/DAY

REACTIONS (9)
  - Drug withdrawal syndrome [Recovered/Resolved]
  - Insomnia [Unknown]
  - Anxiety [Unknown]
  - Diarrhoea [Unknown]
  - Prescribed overdose [Unknown]
  - Malaise [Recovered/Resolved]
  - Hyperhidrosis [Unknown]
  - Nausea [Unknown]
  - Headache [Unknown]

NARRATIVE: CASE EVENT DATE: 200909
